FAERS Safety Report 7670564 (Version 3)
Quarter: 2013Q3

REPORT INFORMATION
  Report Type: Spontaneous
  Country: US (occurrence: US)
  Receive Date: 20101116
  Receipt Date: 20130905
  Transmission Date: 20140515
  Serious: Yes (Hospitalization, Other)
  Sender: FDA-Public Use
  Company Number: US-ROCHE-718943

PATIENT
  Age: 16 Year
  Sex: Male
  Weight: 63.5 kg

DRUGS (2)
  1. ACCUTANE [Suspect]
     Indication: ACNE CYSTIC
     Route: 065
     Dates: start: 19930901, end: 19940203
  2. ACCUTANE [Suspect]
     Route: 065
     Dates: start: 19950516, end: 1995

REACTIONS (10)
  - Colitis ulcerative [Unknown]
  - Intestinal obstruction [Unknown]
  - Gastrointestinal injury [Unknown]
  - Inflammatory bowel disease [Unknown]
  - Depression [Unknown]
  - Cholangitis sclerosing [Unknown]
  - Nephrolithiasis [Unknown]
  - Oral herpes [Unknown]
  - Blood triglycerides increased [Recovered/Resolved]
  - Blood lactate dehydrogenase increased [Unknown]
